FAERS Safety Report 7830920-7 (Version None)
Quarter: 2011Q4

REPORT INFORMATION
  Report Type: 
  Country: None (occurrence: None)
  Receive Date: 20111021
  Receipt Date: 20111018
  Transmission Date: 20120403
  Serious: Yes (Other)
  Sender: FDA-Public Use
  Company Number: US-PFIZER INC-2011223546

PATIENT
  Sex: Female
  Weight: 77.6 kg

DRUGS (2)
  1. LYRICA [Suspect]
     Indication: FIBROMYALGIA
     Dosage: 100 MG, 3X/DAY
     Route: 048
     Dates: start: 20110101, end: 20110901
  2. KLONOPIN [Concomitant]
     Dosage: UNK

REACTIONS (3)
  - GASTRIC DISORDER [None]
  - WEIGHT INCREASED [None]
  - RENAL IMPAIRMENT [None]
